FAERS Safety Report 6494315-3 (Version None)
Quarter: 2009Q4

REPORT INFORMATION
  Report Type: 
  Country: None (occurrence: None)
  Receive Date: 20091214
  Receipt Date: 20091201
  Transmission Date: 20100525
  Serious: Yes (Disabling, Other)
  Sender: FDA-Public Use
  Company Number: DE-ELI_LILLY_AND_COMPANY-DE200912000376

PATIENT
  Sex: Male
  Weight: 70 kg

DRUGS (4)
  1. ZYPREXA [Suspect]
     Indication: SCHIZOAFFECTIVE DISORDER
     Dosage: 20 MG, UNKNOWN
     Route: 065
     Dates: start: 20060101
  2. CARBAMAZEPINE [Concomitant]
     Dosage: 800 MG, UNKNOWN
     Route: 065
     Dates: start: 20060101
  3. HALOPERIDOL [Concomitant]
     Dosage: 2.5 ML, UNKNOWN
     Route: 065
     Dates: start: 20060101
  4. THYROXIN [Concomitant]
     Dosage: UNK, UNKNOWN
     Route: 065
     Dates: start: 20060101

REACTIONS (2)
  - UVEITIS [None]
  - VISUAL IMPAIRMENT [None]
